FAERS Safety Report 4318843-1 (Version None)
Quarter: 2004Q1

REPORT INFORMATION
  Report Type: 
  Country: None (occurrence: None)
  Receive Date: 20040315
  Receipt Date: 20040227
  Transmission Date: 20041129
  Serious: No
  Sender: FDA-Public Use
  Company Number: 430003L04JPN

PATIENT
  Age: 26 Year
  Sex: Male

DRUGS (2)
  1. NOVATRONE (MITOXANTRONE HYDROCHLORIDE) [Suspect]
     Indication: CHRONIC MYELOID LEUKAEMIA
     Dosage: 5 MG, 1 IN 1 DAYS, INTRAVENOUS
     Route: 042
     Dates: start: 20020517
  2. ETOPOSIDE [Suspect]
     Indication: CHRONIC MYELOID LEUKAEMIA
     Dosage: 200 MG, 1 IN 1 DAYS, INTRAVENOUS
     Route: 042
     Dates: start: 20020517

REACTIONS (1)
  - BONE MARROW DEPRESSION [None]
